FAERS Safety Report 8218351 (Version 4)
Quarter: 2013Q2

REPORT INFORMATION
  Report Type: Report from Study
  Country: MX (occurrence: MX)
  Receive Date: 20111101
  Receipt Date: 20130506
  Transmission Date: 20140414
  Serious: Yes (Death, Hospitalization, Other)
  Sender: FDA-Public Use
  Company Number: PHHY2011MX95833

PATIENT
  Age: 70 Year
  Sex: Female

DRUGS (1)
  1. GLIVEC [Suspect]
     Indication: CHRONIC MYELOID LEUKAEMIA
     Dosage: 400 MG, DAILY
     Route: 048
     Dates: start: 201107, end: 20111027

REACTIONS (8)
  - Tumour lysis syndrome [Fatal]
  - Cardio-respiratory arrest [Fatal]
  - Hepatosplenomegaly [Unknown]
  - Anaemia [Unknown]
  - Pyrexia [Unknown]
  - General physical condition abnormal [Unknown]
  - Leukocytosis [Unknown]
  - Thrombocytosis [Unknown]
